FAERS Safety Report 9954715 (Version 1)
Quarter: 2014Q1

REPORT INFORMATION
  Report Type: Spontaneous
  Country: US (occurrence: US)
  Receive Date: 20140304
  Receipt Date: 20140304
  Transmission Date: 20141002
  Serious: No
  Sender: FDA-Public Use
  Company Number: US-ABBVIE-13P-163-1083676-00

PATIENT
  Age: 63 Year
  Sex: Male
  Weight: 108.96 kg

DRUGS (12)
  1. HUMIRA [Suspect]
     Indication: RHEUMATOID ARTHRITIS
     Dates: start: 201211
  2. METHOTREXATE [Concomitant]
     Indication: RHEUMATOID ARTHRITIS
  3. CELEBREX [Concomitant]
     Indication: RHEUMATOID ARTHRITIS
  4. DILANTIN [Concomitant]
     Indication: CONVULSION
  5. PHENOBARBITAL [Concomitant]
     Indication: CONVULSION
  6. LEVOTHYROXINE [Concomitant]
     Indication: HYPOTHYROIDISM
  7. ASPIRIN [Concomitant]
     Indication: CARDIAC DISORDER
  8. FOLIC ACID [Concomitant]
     Indication: DRUG THERAPY ENHANCEMENT
  9. FISH OIL [Concomitant]
     Indication: PRODUCT USED FOR UNKNOWN INDICATION
  10. CALCIUM [Concomitant]
     Indication: PRODUCT USED FOR UNKNOWN INDICATION
  11. GLUCOSAMINE [Concomitant]
     Indication: PRODUCT USED FOR UNKNOWN INDICATION
  12. LIPITOR [Concomitant]
     Indication: BLOOD CHOLESTEROL

REACTIONS (1)
  - Injection site pain [Not Recovered/Not Resolved]
